FAERS Safety Report 24842842 (Version 1)
Quarter: 2025Q1

REPORT INFORMATION
  Report Type: Report from Study
  Country: US (occurrence: US)
  Receive Date: 20250115
  Receipt Date: 20250115
  Transmission Date: 20250409
  Serious: Yes (Other)
  Sender: HRA PHARMA
  Company Number: US-ORG100014127-2024000199

PATIENT
  Age: 36 Year
  Sex: Female

DRUGS (21)
  1. LYSODREN [Suspect]
     Active Substance: MITOTANE
     Indication: Adrenal gland cancer
     Dosage: 1 TABLET TWICE DAILY FOR 2 WEEKS
     Route: 048
     Dates: start: 20240702
  2. LYSODREN [Suspect]
     Active Substance: MITOTANE
     Indication: Adrenal gland cancer
     Dosage: 2 TABLETS TWICE DAILY FOR 2 WEEKS
     Route: 048
  3. DICYCLOMINE TAB 20MG [Concomitant]
     Indication: Product used for unknown indication
  4. ONDANSETRON [Concomitant]
     Active Substance: ONDANSETRON
     Indication: Product used for unknown indication
  5. albuterol aer hfa [Concomitant]
     Indication: Product used for unknown indication
  6. azelastine spray 0.1% [Concomitant]
     Indication: Product used for unknown indication
  7. bupropion tab 300mg XL [Concomitant]
     Indication: Product used for unknown indication
  8. cetirizine tab 10mg [Concomitant]
     Indication: Product used for unknown indication
  9. epinephrine inj 0.15mg [Concomitant]
     Indication: Product used for unknown indication
  10. fexofenadine tab 180mg [Concomitant]
     Indication: Product used for unknown indication
  11. fluticasone spray 50mcg [Concomitant]
     Indication: Product used for unknown indication
  12. hydrocort tab 5mg [Concomitant]
     Indication: Product used for unknown indication
  13. loratadine tab 10mg [Concomitant]
     Indication: Product used for unknown indication
  14. lorazepam tab 0.5mg [Concomitant]
     Indication: Product used for unknown indication
  15. MONTELUKAST SODIUM [Concomitant]
     Active Substance: MONTELUKAST SODIUM
     Indication: Product used for unknown indication
  16. olopatadine drop 0.1% [Concomitant]
     Indication: Product used for unknown indication
  17. prochlorperazine tab 5mg [Concomitant]
     Indication: Product used for unknown indication
  18. promethazine tab 25mg [Concomitant]
     Indication: Product used for unknown indication
  19. solu-cortef inj 1000mg [Concomitant]
     Indication: Product used for unknown indication
  20. sumatriptan tab 50mg [Concomitant]
     Indication: Product used for unknown indication
  21. vitamin d tab 400unit [Concomitant]
     Indication: Product used for unknown indication

REACTIONS (6)
  - Adrenocortical insufficiency acute [Unknown]
  - Arthralgia [Unknown]
  - Nausea [Unknown]
  - Vomiting [Unknown]
  - Fatigue [Unknown]
  - Headache [Unknown]

NARRATIVE: CASE EVENT DATE: 20240711
